FAERS Safety Report 24092249 (Version 1)
Quarter: 2024Q3

REPORT INFORMATION
  Report Type: Spontaneous
  Country: US (occurrence: None)
  Receive Date: 20240714
  Receipt Date: 20240714
  Transmission Date: 20241016
  Serious: Yes (Other)
  Sender: Public
  Company Number: None

PATIENT
  Age: 56 Year
  Sex: Male
  Weight: 57.6 kg

DRUGS (7)
  1. LEVETIRACETAM [Suspect]
     Active Substance: LEVETIRACETAM
     Indication: Seizure
     Dosage: AT BEDTIME
     Route: 048
     Dates: start: 20080511
  2. LEV/LAMICTAL [Concomitant]
  3. CAL MAG [Concomitant]
  4. POTASSIUM [Concomitant]
     Active Substance: POTASSIUM
  5. VIT D [Concomitant]
  6. VITAMIN C [Concomitant]
     Active Substance: ASCORBIC ACID
  7. METHYLCOBALAMIN [Concomitant]
     Active Substance: METHYLCOBALAMIN

REACTIONS (20)
  - Mood altered [None]
  - Anger [None]
  - Mental impairment [None]
  - Epilepsy [None]
  - Decreased appetite [None]
  - Depression [None]
  - Libido decreased [None]
  - Asthenia [None]
  - Somnolence [None]
  - Weight decreased [None]
  - Myocardial infarction [None]
  - Palpitations [None]
  - Abdominal pain upper [None]
  - Blood magnesium decreased [None]
  - Blood potassium decreased [None]
  - Pericardial effusion [None]
  - Feeling abnormal [None]
  - Chromaturia [None]
  - Abnormal faeces [None]
  - Intentional product use issue [None]

NARRATIVE: CASE EVENT DATE: 20240708
